FAERS Safety Report 12724729 (Version 1)
Quarter: 2016Q3

REPORT INFORMATION
  Report Type: Spontaneous
  Country: FR (occurrence: FR)
  Receive Date: 20160908
  Receipt Date: 20160908
  Transmission Date: 20161109
  Serious: Yes (Death)
  Sender: FDA-Public Use
  Company Number: FR-SA-2016SA165100

PATIENT
  Age: 60 Year
  Sex: Male

DRUGS (10)
  1. ZYLORIC [Suspect]
     Active Substance: ALLOPURINOL
     Dosage: 100 MG
     Route: 048
     Dates: end: 20160818
  2. SIMVASTATIN. [Suspect]
     Active Substance: SIMVASTATIN
     Indication: HYPERCHOLESTEROLAEMIA
     Dosage: 40 MG
     Route: 048
     Dates: end: 20160821
  3. SANDIMMUN [Suspect]
     Active Substance: CYCLOSPORINE
     Dosage: 50MG/ML
     Route: 042
     Dates: start: 20160801, end: 20160810
  4. NEORAL [Suspect]
     Active Substance: CYCLOSPORINE
     Dosage: 100 MG
     Route: 048
     Dates: start: 20160812, end: 20160818
  5. TIORFAN [Suspect]
     Active Substance: RACECADOTRIL
     Dosage: 100 MG
     Route: 048
     Dates: start: 20160801, end: 20160803
  6. AERIUS [Suspect]
     Active Substance: DESLORATADINE
     Dosage: 5 MG
     Route: 048
     Dates: start: 20160726, end: 20160803
  7. BISOPROLOL HEMIFUMARATE [Suspect]
     Active Substance: BISOPROLOL FUMARATE
     Route: 048
     Dates: end: 20160822
  8. THYMOGLOBULINE [Suspect]
     Active Substance: LAPINE T-LYMPHOCYTE IMMUNE GLOBULIN
     Route: 042
     Dates: start: 20160730, end: 20160731
  9. ZELITREX [Suspect]
     Active Substance: VALACYCLOVIR HYDROCHLORIDE
     Dosage: 500 MG
     Route: 048
     Dates: start: 20160727, end: 20160822
  10. DIOSMECTITE [Suspect]
     Active Substance: MONTMORILLONITE
     Route: 048
     Dates: start: 20160801, end: 20160803

REACTIONS (5)
  - Shock [Fatal]
  - Renal tubular necrosis [Fatal]
  - Acute kidney injury [Fatal]
  - Confusional state [Fatal]
  - Rhabdomyolysis [Fatal]

NARRATIVE: CASE EVENT DATE: 201608
